FAERS Safety Report 10744218 (Version 1)
Quarter: 2015Q1

REPORT INFORMATION
  Report Type: Spontaneous
  Country: US (occurrence: None)
  Receive Date: 20150126
  Receipt Date: 20150126
  Transmission Date: 20150721
  Serious: Yes (Other)
  Sender: FDA-Public Use
  Company Number: None

PATIENT
  Age: 5 Year
  Sex: Female
  Weight: 29.48 kg

DRUGS (1)
  1. TAMIFLU [Suspect]
     Active Substance: OSELTAMIVIR PHOSPHATE
     Indication: INFLUENZA
     Dosage: 1 1/2 TSP, TWICE DAILY, TAKEN BY MOUTH
     Route: 048
     Dates: start: 20150115, end: 20150117

REACTIONS (3)
  - Hallucination [None]
  - Crying [None]
  - Nightmare [None]

NARRATIVE: CASE EVENT DATE: 20150115
